FAERS Safety Report 9124503 (Version 2)
Quarter: 2013Q1

REPORT INFORMATION
  Report Type: Spontaneous
  Country: US (occurrence: US)
  Receive Date: 20130227
  Receipt Date: 20130307
  Transmission Date: 20140127
  Serious: Yes (Other)
  Sender: FDA-Public Use
  Company Number: CHPA2013US003416

PATIENT
  Age: 71 Year
  Sex: Female

DRUGS (1)
  1. VOLTAREN GEL [Suspect]
     Indication: ARTHRITIS
     Dosage: UNK, ONCE OR TWICE A DAY
     Route: 061

REACTIONS (8)
  - Papule [Recovering/Resolving]
  - Pain [Recovering/Resolving]
  - Wound [Recovering/Resolving]
  - Erythema [Recovering/Resolving]
  - Application site rash [Recovering/Resolving]
  - Therapeutic response unexpected [Unknown]
  - Drug administered at inappropriate site [Unknown]
  - Wrong technique in drug usage process [Unknown]
